FAERS Safety Report 11928839 (Version 2)
Quarter: 2016Q1

REPORT INFORMATION
  Report Type: Spontaneous
  Country: AT (occurrence: AT)
  Receive Date: 20160119
  Receipt Date: 20160301
  Transmission Date: 20160526
  Serious: Yes (Death, Life-Threatening, Hospitalization, Other)
  Sender: FDA-Public Use
  Company Number: AT-009507513-1601AUT004930

PATIENT
  Age: 23 Year
  Sex: Male
  Weight: 57 kg

DRUGS (4)
  1. CANCIDAS [Suspect]
     Active Substance: CASPOFUNGIN ACETATE
     Indication: ANTIFUNGAL PROPHYLAXIS
     Dosage: 50 MG, QD
     Route: 042
     Dates: start: 20100623, end: 20100718
  2. ENBREL [Concomitant]
     Active Substance: ETANERCEPT
  3. SOLU-DACORTIN [Concomitant]
     Active Substance: PREDNISOLONE SODIUM SUCCINATE
  4. SANDIMMUN [Concomitant]
     Active Substance: CYCLOSPORINE

REACTIONS (2)
  - Systemic candida [Fatal]
  - Drug ineffective [Unknown]

NARRATIVE: CASE EVENT DATE: 20100719
